FAERS Safety Report 13961041 (Version 14)
Quarter: 2019Q3

REPORT INFORMATION
  Report Type: Spontaneous
  Country: BR (occurrence: BR)
  Receive Date: 20170912
  Receipt Date: 20190801
  Transmission Date: 20191004
  Serious: Yes (Other)
  Sender: FDA-Public Use
  Company Number: BR-GLAXOSMITHKLINE-BR2017GSK035127

PATIENT
  Age: 43 Year
  Sex: Female
  Weight: 58 kg

DRUGS (8)
  1. IBUPROFEN. [Concomitant]
     Active Substance: IBUPROFEN
     Indication: PRODUCT USED FOR UNKNOWN INDICATION
     Dosage: UNK
  2. LUFTAL [Concomitant]
     Active Substance: DIMETHICONE
     Indication: PRODUCT USED FOR UNKNOWN INDICATION
     Dosage: UNK
  3. BENLYSTA [Suspect]
     Active Substance: BELIMUMAB
     Dosage: 760 MG, UNK
  4. AZATIOPRINA [Concomitant]
     Active Substance: AZATHIOPRINE
     Indication: PRODUCT USED FOR UNKNOWN INDICATION
     Dosage: UNK
  5. DRAMIN B6 [Concomitant]
     Indication: PRODUCT USED FOR UNKNOWN INDICATION
     Dosage: UNK
  6. BENLYSTA [Suspect]
     Active Substance: BELIMUMAB
     Indication: SYSTEMIC LUPUS ERYTHEMATOSUS
     Dosage: 600 MG, 5 VIALS OF 120MG EACH
     Dates: start: 20170210
  7. PREDNISONE. [Concomitant]
     Active Substance: PREDNISONE
     Indication: PRODUCT USED FOR UNKNOWN INDICATION
     Dosage: 5 MG, UNK
  8. REUQUINOL [Concomitant]
     Active Substance: HYDROXYCHLOROQUINE SULFATE
     Indication: PRODUCT USED FOR UNKNOWN INDICATION
     Dosage: UNK

REACTIONS (22)
  - Pyrexia [Unknown]
  - Hypersensitivity [Unknown]
  - Product dose omission [Not Recovered/Not Resolved]
  - Arthralgia [Unknown]
  - Blood cholesterol increased [Unknown]
  - Circumstance or information capable of leading to medication error [Unknown]
  - Rheumatic fever [Unknown]
  - Agitation [Unknown]
  - Burning sensation [Unknown]
  - Myalgia [Unknown]
  - Condition aggravated [Unknown]
  - Insomnia [Unknown]
  - Product availability issue [Unknown]
  - Therapeutic product effect decreased [Unknown]
  - Skin haemorrhage [Unknown]
  - Pruritus generalised [Unknown]
  - Paraesthesia [Unknown]
  - Feeling hot [Unknown]
  - Dermatitis allergic [Unknown]
  - Rheumatic disorder [Unknown]
  - Inappropriate schedule of product administration [Recovered/Resolved]
  - Weight fluctuation [Unknown]

NARRATIVE: CASE EVENT DATE: 20170511
